FAERS Safety Report 12613759 (Version 2)
Quarter: 2017Q1

REPORT INFORMATION
  Report Type: Spontaneous
  Country: NZ (occurrence: NZ)
  Receive Date: 20160802
  Receipt Date: 20170321
  Transmission Date: 20170428
  Serious: Yes (Death)
  Sender: FDA-Public Use
  Company Number: NZ-CELGENEUS-NZL-2016074822

PATIENT
  Sex: Female

DRUGS (2)
  1. REVLIMID [Suspect]
     Active Substance: LENALIDOMIDE
     Route: 048
  2. REVLIMID [Suspect]
     Active Substance: LENALIDOMIDE
     Indication: PLASMA CELL MYELOMA
     Dosage: 25 MILLIGRAM
     Route: 048
     Dates: end: 20160326

REACTIONS (3)
  - Subdural haemorrhage [Fatal]
  - Thrombocytopenia [Fatal]
  - Hypercalcaemia [Fatal]
